FAERS Safety Report 4859942-5 (Version None)
Quarter: 2005Q4

REPORT INFORMATION
  Report Type: 
  Country: None (occurrence: None)
  Receive Date: 20051215
  Receipt Date: 20051208
  Transmission Date: 20060501
  Serious: Yes (Hospitalization)
  Sender: FDA-Public Use
  Company Number: ERP05000174

PATIENT
  Age: 43 Year
  Sex: Female

DRUGS (1)
  1. ACTONEL [Suspect]
     Dosage: 5 MG, DAILY, ORAL
     Route: 048
     Dates: start: 20050607

REACTIONS (2)
  - HERNIA [None]
  - KELOID SCAR [None]
